FAERS Safety Report 7935762-X (Version None)
Quarter: 2011Q4

REPORT INFORMATION
  Report Type: 
  Country: None (occurrence: None)
  Receive Date: 20111123
  Receipt Date: 20111110
  Transmission Date: 20120403
  Serious: Yes (Hospitalization)
  Sender: FDA-Public Use
  Company Number: US-ELI_LILLY_AND_COMPANY-US201109006420

PATIENT
  Sex: Female

DRUGS (6)
  1. CALCIUM [Concomitant]
     Dosage: UNK
     Dates: start: 20110301
  2. VITAMIN D [Concomitant]
  3. LEVOTHROID [Concomitant]
     Dosage: UNK
  4. FORTEO [Suspect]
     Indication: OSTEOPOROSIS
     Dosage: UNK UNK, QD
     Dates: start: 20110301
  5. FORTEO [Suspect]
     Dosage: UNK, QD
  6. SYNTHROID [Concomitant]

REACTIONS (3)
  - DRUG DOSE OMISSION [None]
  - LIMB OPERATION [None]
  - ROTATOR CUFF REPAIR [None]
